FAERS Safety Report 12047188 (Version 2)
Quarter: 2016Q4

REPORT INFORMATION
  Report Type: Spontaneous
  Country: US (occurrence: US)
  Receive Date: 20160208
  Receipt Date: 20161206
  Transmission Date: 20170206
  Serious: No
  Sender: FDA-Public Use
  Company Number: US-BIOGEN-2016BI00178128

PATIENT
  Sex: Female

DRUGS (2)
  1. AVONEX [Suspect]
     Active Substance: INTERFERON BETA-1A
     Indication: MULTIPLE SCLEROSIS
     Route: 065
     Dates: start: 20080528
  2. AVONEX [Suspect]
     Active Substance: INTERFERON BETA-1A
     Route: 065
     Dates: start: 19961115, end: 20000512

REACTIONS (8)
  - Hip fracture [Unknown]
  - Balance disorder [Unknown]
  - Device malfunction [Unknown]
  - Fall [Recovered/Resolved]
  - Spondylitis [Unknown]
  - Asthenia [Unknown]
  - Abasia [Unknown]
  - Dysstasia [Unknown]
